FAERS Safety Report 10231110 (Version 1)
Quarter: 2014Q2

REPORT INFORMATION
  Report Type: Report from Study
  Country: US (occurrence: US)
  Receive Date: 20140611
  Receipt Date: 20140611
  Transmission Date: 20141212
  Serious: Yes (Other)
  Sender: FDA-Public Use
  Company Number: US-BRISTOL-MYERS SQUIBB COMPANY-20940664

PATIENT
  Age: 32 Year
  Sex: Male
  Weight: 90.4 kg

DRUGS (1)
  1. IPILIMUMAB [Suspect]
     Indication: MALIGNANT MELANOMA
     Dosage: MAINTENCE THERAPY:Q 12W-W 24,36,48,60.?TOTAL DOSE:270MG?LAST DOSE:6MAY14
     Route: 042
     Dates: start: 20140506

REACTIONS (1)
  - Hypophosphataemia [Not Recovered/Not Resolved]
